FAERS Safety Report 16420730 (Version 1)
Quarter: 2020Q3

REPORT INFORMATION
  Report Type: Spontaneous
  Country: US (occurrence: US)
  Receive Date: 20190611
  Receipt Date: 20190611
  Transmission Date: 20201105
  Serious: Yes (Hospitalization)
  Sender: FDA-Public Use
  Company Number: None

PATIENT
  Age: 77 Year
  Sex: Female
  Weight: 94.22 kg

DRUGS (9)
  1. METHYLPREDNISOLONE 80 MG DAILY [Concomitant]
     Dates: start: 20190517, end: 20190521
  2. DIPHENHYDRAMINE 50 MG [Concomitant]
     Dates: start: 20190516, end: 20190520
  3. DRONEDARONE 400 MG BID [Concomitant]
     Dates: start: 20190515, end: 20190611
  4. FUROSEMIDE 20 MG EVERY 8 HRS [Concomitant]
     Dates: start: 20190519, end: 20190524
  5. ACETAMINOPHEN 650 MG [Concomitant]
     Active Substance: ACETAMINOPHEN
     Dates: start: 20190516, end: 20190520
  6. ENOXAPARIN 30 MG DAILY [Concomitant]
     Dates: start: 20190515, end: 20190521
  7. ALBUMIN 25 % EVERY 12 HRS [Concomitant]
     Dates: start: 20190515, end: 20190523
  8. FAMOTIDINE 20 MG [Concomitant]
     Active Substance: FAMOTIDINE
     Dates: start: 20190516, end: 20190520
  9. TAGRAXOFUSP. [Suspect]
     Active Substance: TAGRAXOFUSP
     Indication: BLASTIC PLASMACYTOID DENDRITIC CELL NEOPLASIA
     Dates: start: 20190516, end: 20190520

REACTIONS (6)
  - Hypoalbuminaemia [None]
  - Hepatic enzyme increased [None]
  - Weight increased [None]
  - Oedema [None]
  - Capillary leak syndrome [None]
  - Bronchitis [None]

NARRATIVE: CASE EVENT DATE: 20190521
